FAERS Safety Report 5819212-5 (Version None)
Quarter: 2008Q3

REPORT INFORMATION
  Report Type: 
  Country: None (occurrence: None)
  Receive Date: 20080721
  Receipt Date: 20080721
  Transmission Date: 20090109
  Serious: Yes (Hospitalization)
  Sender: FDA-Public Use
  Company Number: None

PATIENT
  Age: 58 Year
  Sex: Male
  Weight: 102.5 kg

DRUGS (1)
  1. ZIPRASIDONE HCL [Suspect]
     Indication: POST-TRAUMATIC STRESS DISORDER
     Dosage: 60 MG HS PO
     Route: 048
     Dates: start: 20080624, end: 20080708

REACTIONS (10)
  - ARTHRALGIA [None]
  - BLOOD CREATININE INCREASED [None]
  - BLOOD UREA INCREASED [None]
  - CHILLS [None]
  - HYPERGLYCAEMIA [None]
  - INSOMNIA [None]
  - NAUSEA [None]
  - RASH PRURITIC [None]
  - RENAL DISORDER [None]
  - VOMITING [None]
